FAERS Safety Report 10050168 (Version 2)
Quarter: 2014Q2

REPORT INFORMATION
  Report Type: Spontaneous
  Country: US (occurrence: US)
  Receive Date: 20140401
  Receipt Date: 20140505
  Transmission Date: 20141212
  Serious: No
  Sender: FDA-Public Use
  Company Number: US-TEVA-470282USA

PATIENT
  Age: 39 Year
  Sex: Female

DRUGS (1)
  1. AMRIX [Suspect]
     Dates: end: 20140213

REACTIONS (1)
  - Hypersomnia [Recovered/Resolved]
